FAERS Safety Report 10507635 (Version 1)
Quarter: 2014Q4

REPORT INFORMATION
  Report Type: Spontaneous
  Country: FR (occurrence: FR)
  Receive Date: 20141009
  Receipt Date: 20141009
  Transmission Date: 20150528
  Serious: Yes (Death)
  Sender: FDA-Public Use
  Company Number: FR-SA-2014SA135343

PATIENT
  Age: 65 Year
  Sex: Male

DRUGS (10)
  1. CORTANCYL [Suspect]
     Active Substance: PREDNISONE
     Indication: RHEUMATOID ARTHRITIS
     Route: 048
     Dates: end: 20140531
  2. REMICADE [Suspect]
     Active Substance: INFLIXIMAB
     Indication: RHEUMATOID ARTHRITIS
     Route: 041
     Dates: start: 20140402, end: 20140430
  3. EUPANTOL [Concomitant]
     Active Substance: PANTOPRAZOLE SODIUM
  4. TAMSULOSIN [Concomitant]
     Active Substance: TAMSULOSIN
     Route: 048
  5. ARAVA [Suspect]
     Active Substance: LEFLUNOMIDE
     Indication: RHEUMATOID ARTHRITIS
     Route: 048
     Dates: end: 20140531
  6. XARELTO [Concomitant]
     Active Substance: RIVAROXABAN
     Route: 048
  7. CORDARONE [Concomitant]
     Active Substance: AMIODARONE HYDROCHLORIDE
     Route: 048
  8. NOZINAN [Concomitant]
     Active Substance: LEVOMEPROMAZINE
  9. ADRENALINE [Concomitant]
     Active Substance: EPINEPHRINE
  10. BISOCE [Concomitant]
     Active Substance: BISOPROLOL

REACTIONS (5)
  - Acute respiratory failure [Fatal]
  - Cerebral haemorrhage [Fatal]
  - Bronchopulmonary aspergillosis [Fatal]
  - Respiratory acidosis [Fatal]
  - Neutropenia [Fatal]

NARRATIVE: CASE EVENT DATE: 20140514
